FAERS Safety Report 10361009 (Version 1)
Quarter: 2014Q3

REPORT INFORMATION
  Report Type: Spontaneous
  Country: GB (occurrence: None)
  Receive Date: 20140731
  Receipt Date: 20140731
  Transmission Date: 20150326
  Serious: Yes (Hospitalization)
  Sender: FDA-Public Use
  Company Number: FK201403001

PATIENT
  Age: 39 Year
  Sex: Female

DRUGS (5)
  1. CARBOPLATIN. [Suspect]
     Active Substance: CARBOPLATIN
     Indication: PRODUCT USED FOR UNKNOWN INDICATION
     Dates: start: 20130807
  2. HYDROCORTISONE. [Suspect]
     Active Substance: HYDROCORTISONE
     Indication: PRODUCT USED FOR UNKNOWN INDICATION
     Dates: start: 20130807, end: 20130807
  3. DOCETAXEL [Suspect]
     Active Substance: DOCETAXEL
     Indication: PRODUCT USED FOR UNKNOWN INDICATION
     Dates: start: 20130807
  4. DEXAMETHASONE. [Suspect]
     Active Substance: DEXAMETHASONE
     Indication: PRODUCT USED FOR UNKNOWN INDICATION
     Dates: start: 20130808
  5. TRASTUZUMAB (TRASTUZUMAB) [Concomitant]
     Active Substance: TRASTUZUMAB

REACTIONS (8)
  - Neutropenic sepsis [None]
  - Urinary tract infection [None]
  - Nausea [None]
  - Haematocrit decreased [None]
  - Red blood cell count decreased [None]
  - Blood pressure diastolic decreased [None]
  - Rash [None]
  - Abdominal pain [None]

NARRATIVE: CASE EVENT DATE: 20130814
